FAERS Safety Report 11195344 (Version 1)
Quarter: 2015Q2

REPORT INFORMATION
  Report Type: Spontaneous
  Country: US (occurrence: None)
  Receive Date: 20150615
  Receipt Date: 20150615
  Transmission Date: 20150821
  Serious: Yes (Disabling)
  Sender: FDA-Public Use
  Company Number: None

PATIENT
  Age: 35 Year
  Sex: Female
  Weight: 130.18 kg

DRUGS (35)
  1. SINGULAIR [Suspect]
     Active Substance: MONTELUKAST SODIUM
     Indication: ASTHMA
     Dosage: EVERY EVENING, TAKEN BY MOUTH
     Dates: start: 20121220, end: 20150120
  2. BUSPIRONE [Concomitant]
     Active Substance: BUSPIRONE HYDROCHLORIDE
  3. LEVOTHYROXYNE [Concomitant]
  4. RESTASIS [Concomitant]
     Active Substance: CYCLOSPORINE
  5. SINGULAIR [Suspect]
     Active Substance: MONTELUKAST SODIUM
     Indication: HYPERSENSITIVITY
     Dosage: 1 TABLET EVERY EVENING
     Route: 048
     Dates: start: 20150510, end: 20150520
  6. DULOXETINE [Concomitant]
     Active Substance: DULOXETINE
  7. METFORMIN [Concomitant]
     Active Substance: METFORMIN HYDROCHLORIDE
  8. MONTELUKAST [Concomitant]
     Active Substance: MONTELUKAST SODIUM
  9. VITAMIN B COMPLEX [Concomitant]
     Active Substance: CYANOCOBALAMIN\DEXPANTHENOL\NIACINAMIDE\PYRIDOXINE HYDROCHLORIDE\RIBOFLAVIN 5^-PHOSPHATE SODIUM\THIAMINE HYDROCHLORIDE\VITAMIN B COMPLEX
  10. IBUPROFEN. [Concomitant]
     Active Substance: IBUPROFEN
  11. SIMETHICONE [Concomitant]
     Active Substance: DIMETHICONE\SILICON DIOXIDE\SIMETHICONE
  12. OXYCODONE/ACETAMINOPHEN [Concomitant]
     Active Substance: ACETAMINOPHEN\OXYCODONE HYDROCHLORIDE
  13. VENTOLIN HFA INHALER [Concomitant]
  14. CENTRUM SILVER [Concomitant]
     Active Substance: VITAMINS
  15. VITAMIN D [Concomitant]
     Active Substance: CHOLECALCIFEROL
  16. CRANBERRY EXTRACT [Concomitant]
     Active Substance: CRANBERRY JUICE
  17. OMEPRAZOLE. [Concomitant]
     Active Substance: OMEPRAZOLE
  18. LINZESS [Concomitant]
     Active Substance: LINACLOTIDE
  19. LIQUID ANTACID (ALUMINUM HYDROXIDE, MAGNESIUM HYDROXIDE, SIMETHICONE) [Concomitant]
  20. MUCINEX [Concomitant]
     Active Substance: GUAIFENESIN
  21. SINGULAIR [Suspect]
     Active Substance: MONTELUKAST SODIUM
     Indication: HYPERSENSITIVITY
     Dosage: EVERY EVENING
     Dates: start: 20150606, end: 20150608
  22. SINGULAIR [Suspect]
     Active Substance: MONTELUKAST SODIUM
     Indication: ASTHMA
     Dosage: 1 TABLET EVERY EVENING
     Route: 048
     Dates: start: 20150510, end: 20150520
  23. BUPROPION [Concomitant]
     Active Substance: BUPROPION
  24. VITAMIN D [Concomitant]
     Active Substance: CHOLECALCIFEROL
  25. MELOXICAM. [Concomitant]
     Active Substance: MELOXICAM
  26. SINGULAIR [Suspect]
     Active Substance: MONTELUKAST SODIUM
     Indication: HYPERSENSITIVITY
     Dosage: EVERY EVENING, TAKEN BY MOUTH
     Dates: start: 20121220, end: 20150120
  27. BACLOFEN. [Concomitant]
     Active Substance: BACLOFEN
  28. METOPROLOL SUCCINATE. [Concomitant]
     Active Substance: METOPROLOL SUCCINATE
  29. DICYCLOMINE [Concomitant]
     Active Substance: DICYCLOMINE HYDROCHLORIDE
  30. VITAMIN C [Concomitant]
     Active Substance: ASCORBIC ACID
  31. DIPHENHYDRAMINE [Concomitant]
     Active Substance: DIPHENHYDRAMINE
  32. SINGULAIR [Suspect]
     Active Substance: MONTELUKAST SODIUM
     Indication: ASTHMA
     Dosage: EVERY EVENING
     Dates: start: 20150606, end: 20150608
  33. BUTALBITAL, ACETAMINOPHEN, AND CAFFEINE [Concomitant]
     Active Substance: ACETAMINOPHEN\BUTALBITAL\CAFFEINE
  34. PROMETHAZINE [Concomitant]
     Active Substance: PROMETHAZINE\PROMETHAZINE HYDROCHLORIDE
  35. KETOROLAC [Concomitant]
     Active Substance: KETOROLAC\KETOROLAC TROMETHAMINE

REACTIONS (8)
  - Drug ineffective [None]
  - Product quality issue [None]
  - Headache [None]
  - Nightmare [None]
  - Product substitution issue [None]
  - Poor quality sleep [None]
  - Hypersensitivity [None]
  - Sinus headache [None]

NARRATIVE: CASE EVENT DATE: 20150608
